FAERS Safety Report 25664495 (Version 2)
Quarter: 2025Q4

REPORT INFORMATION
  Report Type: Spontaneous
  Country: US (occurrence: US)
  Receive Date: 20250811
  Receipt Date: 20251119
  Transmission Date: 20260117
  Serious: Yes (Other)
  Sender: SANOFI AVENTIS
  Company Number: US-SA-2025SA232844

PATIENT
  Age: 83 Year
  Sex: Male
  Weight: 86.18 kg

DRUGS (36)
  1. DUPIXENT [Suspect]
     Active Substance: DUPILUMAB
     Indication: Dermatitis atopic
     Dosage: 300 MG, QOW
     Route: 058
  2. DUPIXENT [Suspect]
     Active Substance: DUPILUMAB
     Indication: Peptic ulcer
  3. DUPIXENT [Suspect]
     Active Substance: DUPILUMAB
     Indication: Cardiac disorder
  4. DUPIXENT [Suspect]
     Active Substance: DUPILUMAB
     Indication: Cardiac failure congestive
  5. DUPIXENT [Suspect]
     Active Substance: DUPILUMAB
     Indication: Amyloidosis
  6. ASPIRIN [Concomitant]
     Active Substance: ASPIRIN
  7. ATORVASTATIN CALCIUM [Concomitant]
     Active Substance: ATORVASTATIN CALCIUM
  8. ATORVASTATIN CALCIUM [Concomitant]
     Active Substance: ATORVASTATIN CALCIUM
  9. GABAPENTIN [Concomitant]
     Active Substance: GABAPENTIN
  10. GABAPENTIN [Concomitant]
     Active Substance: GABAPENTIN
  11. VYNDAMAX [Concomitant]
     Active Substance: TAFAMIDIS
  12. VYNDAMAX [Concomitant]
     Active Substance: TAFAMIDIS
  13. VITAMINS [Concomitant]
     Active Substance: VITAMINS
  14. VITAMINS [Concomitant]
     Active Substance: VITAMINS
  15. ALTACE [Concomitant]
     Active Substance: RAMIPRIL
  16. ALTACE [Concomitant]
     Active Substance: RAMIPRIL
  17. ALENDRONATE SODIUM [Concomitant]
     Active Substance: ALENDRONATE SODIUM
  18. ALENDRONATE SODIUM [Concomitant]
     Active Substance: ALENDRONATE SODIUM
  19. JARDIANCE [Concomitant]
     Active Substance: EMPAGLIFLOZIN
  20. BREZTRI [Concomitant]
     Active Substance: BUDESONIDE\FORMOTEROL\GLYCOPYRROLATE
  21. BREZTRI [Concomitant]
     Active Substance: BUDESONIDE\FORMOTEROL\GLYCOPYRROLATE
  22. ALDACTONE [Concomitant]
     Active Substance: SPIRONOLACTONE
  23. ALDACTONE [Concomitant]
     Active Substance: SPIRONOLACTONE
  24. LIDOCAINE [Concomitant]
     Active Substance: LIDOCAINE
  25. LIDOCAINE [Concomitant]
     Active Substance: LIDOCAINE
  26. CYANOCOBALAMIN\DEXPANTHENOL\NIACINAMIDE\PYRIDOXINE HYDROCHLORIDE\RIBOF [Concomitant]
     Active Substance: CYANOCOBALAMIN\DEXPANTHENOL\NIACINAMIDE\PYRIDOXINE HYDROCHLORIDE\RIBOFLAVIN 5^-PHOSPHATE SODIUM\THIA
  27. CYANOCOBALAMIN\DEXPANTHENOL\NIACINAMIDE\PYRIDOXINE HYDROCHLORIDE\RIBOF [Concomitant]
     Active Substance: CYANOCOBALAMIN\DEXPANTHENOL\NIACINAMIDE\PYRIDOXINE HYDROCHLORIDE\RIBOFLAVIN 5^-PHOSPHATE SODIUM\THIA
  28. FUROSEMIDE [Concomitant]
     Active Substance: FUROSEMIDE
  29. FUROSEMIDE [Concomitant]
     Active Substance: FUROSEMIDE
  30. SERTRALINE HYDROCHLORIDE [Concomitant]
     Active Substance: SERTRALINE HYDROCHLORIDE
  31. SERTRALINE HYDROCHLORIDE [Concomitant]
     Active Substance: SERTRALINE HYDROCHLORIDE
  32. RAMIPRIL [Concomitant]
     Active Substance: RAMIPRIL
  33. CALCIUM\CHOLECALCIFEROL [Concomitant]
     Active Substance: CALCIUM\CHOLECALCIFEROL
  34. ASPIRIN [Concomitant]
     Active Substance: ASPIRIN
  35. CALCIUM\VITAMIN D [Concomitant]
     Active Substance: CALCIUM\VITAMIN D
  36. RAMIPRIL [Concomitant]
     Active Substance: RAMIPRIL

REACTIONS (4)
  - Neoplasm malignant [Unknown]
  - Vein disorder [Unknown]
  - Stent placement [Unknown]
  - Product use in unapproved indication [Unknown]

NARRATIVE: CASE EVENT DATE: 20250301
